FAERS Safety Report 16282423 (Version 1)
Quarter: 2019Q2

REPORT INFORMATION
  Report Type: Spontaneous
  Country: JP (occurrence: JP)
  Receive Date: 20190507
  Receipt Date: 20190507
  Transmission Date: 20190711
  Serious: Yes (Other)
  Sender: FDA-Public Use
  Company Number: JP-PENTEC HEALTH-2019PEN00035

PATIENT
  Age: 37 Year
  Sex: Female
  Weight: 42.5 kg

DRUGS (8)
  1. MAGNESIUM SULFATE. [Suspect]
     Active Substance: MAGNESIUM SULFATE
     Indication: PRE-ECLAMPSIA
     Dosage: 4 G, OVER 20 MINUTES
     Route: 065
  2. MAGNESIUM SULFATE. [Suspect]
     Active Substance: MAGNESIUM SULFATE
     Dosage: 1 G, CONTINUOUS/HR
     Route: 065
  3. FENTANYL. [Concomitant]
     Active Substance: FENTANYL
     Dosage: 200 MCG
  4. PROPOFOL. [Concomitant]
     Active Substance: PROPOFOL
     Dosage: 100 MG
  5. NIFEDIPINE. [Suspect]
     Active Substance: NIFEDIPINE
     Indication: HYPERTENSION
     Dosage: 10 MG
     Route: 048
  6. ROCURONIUM [Suspect]
     Active Substance: ROCURONIUM BROMIDE
     Indication: NEUROMUSCULAR BLOCKADE
     Dosage: 40 MG
     Route: 065
  7. SEVOFLURANE. [Concomitant]
     Active Substance: SEVOFLURANE
     Dosage: 1.0?1.5%
  8. REMIFENTANIL [Concomitant]
     Active Substance: REMIFENTANIL
     Dosage: .1?0.2 MCG/KG/MIN
     Route: 065

REACTIONS (3)
  - Drug interaction [Recovered/Resolved]
  - Exposure during pregnancy [Recovered/Resolved]
  - Neuromuscular blockade [Recovered/Resolved]
